FAERS Safety Report 4653154-6 (Version None)
Quarter: 2005Q2

REPORT INFORMATION
  Report Type: 
  Country: None (occurrence: None)
  Receive Date: 20050505
  Receipt Date: 20050113
  Transmission Date: 20051028
  Serious: Yes (Other)
  Sender: FDA-Public Use
  Company Number: DE-SOLVAY-00305000116

PATIENT
  Age: 23489 Day
  Sex: Male
  Weight: 73 kg

DRUGS (3)
  1. BELOC_ZOC 12.5 [Concomitant]
     Indication: ILL-DEFINED DISORDER
     Dosage: DAILY DOSE:  UNKNOWN
     Route: 065
  2. ANDROTOP GEL 50 MG [Suspect]
     Indication: ILL-DEFINED DISORDER
     Dosage: DAILY DOSE: 50 MILLIGRAM(S)
     Route: 062
     Dates: start: 20041107
  3. OMNIC [Concomitant]
     Indication: ILL-DEFINED DISORDER
     Dosage: DAILY DOSE:  UNKNOWN
     Route: 065

REACTIONS (1)
  - TENDON RUPTURE [None]
